FAERS Safety Report 6714010 (Version 1)
Quarter: 2020Q3

REPORT INFORMATION
  Report Type: Report from Study
  Country: US (occurrence: US)
  Receive Date: 20080730
  Receipt Date: 20080730
  Transmission Date: 20201105
  Serious: Yes (Other)
  Sender: FDA-Public Use
  Company Number: US-ROCHE-576840

PATIENT
  Age: 74 Year
  Sex: Female

DRUGS (3)
  1. IBANDRONIC ACID. [Suspect]
     Active Substance: IBANDRONIC ACID
     Indication: OSTEOPOROSIS PROPHYLAXIS
     Route: 065
     Dates: start: 2004
  2. UNSPECIFIED INGREDIENT [Concomitant]
     Active Substance: UNSPECIFIED INGREDIENT
     Dosage: DRUG REPORTED AS: UNSPECIFIED HIGH BLOOD PRESSURE MEDICATION
  3. TRAMADOL HYDROCHLORIDE. [Concomitant]
     Active Substance: TRAMADOL HYDROCHLORIDE
     Indication: SLEEP DISORDER THERAPY

REACTIONS (1)
  - Breast cancer [Unknown]

NARRATIVE: CASE EVENT DATE: 20071025
